FAERS Safety Report 16273460 (Version 1)
Quarter: 2019Q2

REPORT INFORMATION
  Report Type: Spontaneous
  Country: US (occurrence: US)
  Receive Date: 20190506
  Receipt Date: 20190506
  Transmission Date: 20190711
  Serious: No
  Sender: FDA-Public Use
  Company Number: US-ASTRAZENECA-2019SE64402

PATIENT
  Sex: Male

DRUGS (3)
  1. MOVANTIK [Suspect]
     Active Substance: NALOXEGOL OXALATE
     Route: 048
  2. TAGRISSO [Suspect]
     Active Substance: OSIMERTINIB
     Route: 048
  3. MOVANTIK [Suspect]
     Active Substance: NALOXEGOL OXALATE
     Route: 048

REACTIONS (8)
  - Bowel movement irregularity [Unknown]
  - Muscle spasms [Unknown]
  - Hypophagia [Unknown]
  - Nausea [Unknown]
  - Constipation [Unknown]
  - Pain [Unknown]
  - Decreased appetite [Unknown]
  - Therapeutic product effect decreased [Unknown]
